FAERS Safety Report 6906082-7 (Version None)
Quarter: 2010Q3

REPORT INFORMATION
  Report Type: 
  Country: None (occurrence: None)
  Receive Date: 20100804
  Receipt Date: 20100727
  Transmission Date: 20110219
  Serious: Yes (Other)
  Sender: FDA-Public Use
  Company Number: US-SANOFI-AVENTIS-2010SA044174

PATIENT
  Age: 85 Year
  Sex: Female

DRUGS (2)
  1. LANTUS [Suspect]
     Indication: TYPE 2 DIABETES MELLITUS
     Dosage: 25 UNITS IN THE AM AND 15 UNITS IN THE PM
     Route: 058
     Dates: start: 20050101
  2. OPTICLICK [Suspect]
     Indication: TYPE 2 DIABETES MELLITUS
     Dates: start: 20100601

REACTIONS (3)
  - CATARACT [None]
  - GLAUCOMA [None]
  - VISUAL IMPAIRMENT [None]
